FAERS Safety Report 10223181 (Version 1)
Quarter: 2014Q2

REPORT INFORMATION
  Report Type: Spontaneous
  Country: US (occurrence: US)
  Receive Date: 20140608
  Receipt Date: 20140608
  Transmission Date: 20141212
  Serious: No
  Sender: FDA-Public Use
  Company Number: US-TEVA-485479USA

PATIENT
  Sex: Female

DRUGS (1)
  1. COPAXONE 40MG [Suspect]
     Indication: MULTIPLE SCLEROSIS
     Dosage: X3/WEEK

REACTIONS (2)
  - Chest pain [Recovered/Resolved]
  - Adverse event [Not Recovered/Not Resolved]
